FAERS Safety Report 22332098 (Version 2)
Quarter: 2023Q2

REPORT INFORMATION
  Report Type: Report from Study
  Country: AU (occurrence: AU)
  Receive Date: 20230517
  Receipt Date: 20230530
  Transmission Date: 20230721
  Serious: Yes (Death)
  Sender: FDA-Public Use
  Company Number: AU-PFIZER INC-2021600664

PATIENT
  Age: 49 Year
  Sex: Female
  Weight: 54 kg

DRUGS (6)
  1. TOFACITINIB CITRATE [Suspect]
     Active Substance: TOFACITINIB CITRATE
     Indication: Scleroderma
     Dosage: 5 MG, 2X/DAY
  2. PREDNISOLONE [Concomitant]
     Active Substance: PREDNISOLONE
     Dosage: BASELINE
     Route: 048
  3. RITUXIMAB [Concomitant]
     Active Substance: RITUXIMAB
     Dosage: 6 MONTHLY
  4. AZATHIOPRINE [Concomitant]
     Active Substance: AZATHIOPRINE
     Dosage: MAX DOSE FOR WEIGHT
  5. PRIVIGEN [Concomitant]
     Active Substance: HUMAN IMMUNOGLOBULIN G
     Route: 042
  6. SILDENAFIL [Concomitant]
     Active Substance: SILDENAFIL

REACTIONS (1)
  - Disease progression [Fatal]
